FAERS Safety Report 21065762 (Version 1)
Quarter: 2022Q3

REPORT INFORMATION
  Report Type: Spontaneous
  Country: CN (occurrence: CN)
  Receive Date: 20220711
  Receipt Date: 20220711
  Transmission Date: 20221027
  Serious: Yes (Other)
  Sender: FDA-Public Use
  Company Number: IT-00000035

PATIENT

DRUGS (1)
  1. LIDOCAINE [Suspect]
     Active Substance: LIDOCAINE
     Dosage: UNK
     Route: 065

REACTIONS (4)
  - Myocardial depression [Unknown]
  - Cardiac arrest [Unknown]
  - Drug interaction [Unknown]
  - Anxiety [Unknown]
